FAERS Safety Report 5022340-8 (Version None)
Quarter: 2006Q2

REPORT INFORMATION
  Report Type: 
  Country: None (occurrence: None)
  Receive Date: 20060609
  Receipt Date: 20031107
  Transmission Date: 20061013
  Serious: Yes (Other)
  Sender: FDA-Public Use
  Company Number: PHEH2003US10329

PATIENT
  Age: 78 Year
  Sex: Female

DRUGS (4)
  1. GLEEVEC [Suspect]
     Indication: CHRONIC MYELOID LEUKAEMIA
     Dosage: 400 MG, QD
     Route: 048
     Dates: start: 20020901
  2. DARVOCET [Concomitant]
     Dosage: 2 DF, Q4H
     Route: 048
  3. RITUXAN [Concomitant]
  4. XANAX [Concomitant]

REACTIONS (3)
  - BIOPSY BONE MARROW ABNORMAL [None]
  - LYMPHOPROLIFERATIVE DISORDER [None]
  - NON-HODGKIN'S LYMPHOMA [None]
